FAERS Safety Report 8150771-6 (Version None)
Quarter: 2012Q1

REPORT INFORMATION
  Report Type: 
  Country: None (occurrence: None)
  Receive Date: 20120220
  Receipt Date: 20120208
  Transmission Date: 20120608
  Serious: Yes (Death)
  Sender: FDA-Public Use
  Company Number: JP-AMGEN-JPNCT2011023478

PATIENT
  Age: 75 Year
  Sex: Female
  Weight: 47 kg

DRUGS (4)
  1. POLARAMINE [Concomitant]
     Route: 041
     Dates: start: 20110427, end: 20110427
  2. DEXAMETHASONE SODIUM PHOSPHATE [Concomitant]
     Route: 041
     Dates: start: 20110427, end: 20110427
  3. SEISHOKU [Concomitant]
     Route: 041
     Dates: start: 20110427, end: 20110427
  4. PANITUMUMAB [Suspect]
     Indication: COLORECTAL CANCER METASTATIC
     Dosage: 84 ML, Q2WK
     Route: 041
     Dates: start: 20110427, end: 20110427

REACTIONS (4)
  - HAEMORRHAGE INTRACRANIAL [None]
  - INFUSION RELATED REACTION [None]
  - DISSEMINATED INTRAVASCULAR COAGULATION [None]
  - HAEMORRHAGIC DIATHESIS [None]
